FAERS Safety Report 7579412-3 (Version None)
Quarter: 2011Q2

REPORT INFORMATION
  Report Type: 
  Country: None (occurrence: None)
  Receive Date: 20110629
  Receipt Date: 20110621
  Transmission Date: 20111010
  Serious: Yes (Hospitalization)
  Sender: FDA-Public Use
  Company Number: US-BIOGENIDEC-2011BI020542

PATIENT
  Age: 47 Year
  Sex: Female

DRUGS (14)
  1. BACLOFEN [Concomitant]
  2. TYSABRI [Suspect]
     Indication: MULTIPLE SCLEROSIS
     Route: 042
     Dates: start: 20090226, end: 20110401
  3. SAVELLA [Concomitant]
  4. ZANTAC [Concomitant]
  5. REQUIP [Concomitant]
  6. VALIUM [Concomitant]
  7. ASPIRIN [Concomitant]
  8. CELEXA [Concomitant]
  9. OXYBUTYNIN [Concomitant]
  10. PRIMIDONE [Concomitant]
  11. PROVIGIL [Concomitant]
  12. LISINOPRIL [Concomitant]
  13. MORPHINE [Concomitant]
  14. LOVASTATIN [Concomitant]

REACTIONS (1)
  - PNEUMONIA [None]
